FAERS Safety Report 9779891 (Version 1)
Quarter: 2013Q4

REPORT INFORMATION
  Report Type: Spontaneous
  Country: FR (occurrence: FR)
  Receive Date: 20131223
  Receipt Date: 20131223
  Transmission Date: 20140711
  Serious: Yes (Hospitalization)
  Sender: FDA-Public Use
  Company Number: PHHY2013FR149387

PATIENT
  Age: 33 Year
  Sex: Female

DRUGS (9)
  1. DOXYCYCLINE SANDOZ [Suspect]
     Indication: RESPIRATORY FAILURE
     Dosage: 200 MG, BID
     Route: 048
     Dates: start: 20090112, end: 20090120
  2. ROCEPHINE [Suspect]
     Indication: RESPIRATORY FAILURE
     Dosage: 2 G, QD
     Route: 042
     Dates: start: 20090112, end: 200901
  3. DEPAKINE CHRONO [Suspect]
     Indication: EPILEPSY
     Dosage: 0.5 DF, BID
     Route: 048
  4. DI ANTALVIC [Suspect]
     Indication: PAIN
     Route: 048
     Dates: start: 20090111, end: 200901
  5. TAMIK [Concomitant]
  6. PREVISCAN [Concomitant]
  7. NORSET [Concomitant]
  8. THERALENE [Concomitant]
     Route: 065
  9. XANAX [Concomitant]
     Route: 065

REACTIONS (1)
  - Cholestasis [Unknown]
